FAERS Safety Report 5309371-5 (Version None)
Quarter: 2007Q2

REPORT INFORMATION
  Report Type: 
  Country: None (occurrence: None)
  Receive Date: 20070423
  Receipt Date: 20070405
  Transmission Date: 20071010
  Serious: Yes (Congenital Anomaly)
  Sender: FDA-Public Use
  Company Number: 8018471

PATIENT
  Sex: Male
  Weight: 2.6 kg

DRUGS (2)
  1. KEPPRA [Suspect]
     Dosage: 500 MG 2/D TRP
     Route: 064
     Dates: start: 20051221, end: 20060605
  2. KEPPRA [Suspect]
     Dosage: 1250 MG TRP
     Route: 064
     Dates: start: 20060606, end: 20060826

REACTIONS (7)
  - APGAR SCORE LOW [None]
  - DRUG EXPOSURE DURING PREGNANCY [None]
  - HEART DISEASE CONGENITAL [None]
  - PREMATURE BABY [None]
  - SMALL FOR DATES BABY [None]
  - TRICUSPID VALVE DISEASE [None]
  - VENTRICULAR SEPTAL DEFECT [None]
